FAERS Safety Report 21848834 (Version 1)
Quarter: 2023Q1

REPORT INFORMATION
  Report Type: Other
  Country: US (occurrence: None)
  Receive Date: 20230111
  Receipt Date: 20230111
  Transmission Date: 20230417
  Serious: Yes (Other)
  Sender: FDA-Public Use
  Company Number: US-ROCHE-3258459

PATIENT
  Age: 20 Year
  Sex: Male
  Weight: 71.732 kg

DRUGS (8)
  1. OCREVUS [Suspect]
     Active Substance: OCRELIZUMAB
     Indication: Relapsing multiple sclerosis
     Route: 065
     Dates: start: 2019
  2. ARMODAFINIL [Concomitant]
     Active Substance: ARMODAFINIL
  3. DULOXETINE [Concomitant]
     Active Substance: DULOXETINE
  4. VILAZODONE [Concomitant]
     Active Substance: VILAZODONE
  5. TRAZODONE [Concomitant]
     Active Substance: TRAZODONE HYDROCHLORIDE
  6. NALTREXONE [Concomitant]
     Active Substance: NALTREXONE
  7. GABAPENTIN [Concomitant]
     Active Substance: GABAPENTIN
  8. SAPHRIS [Concomitant]
     Active Substance: ASENAPINE MALEATE

REACTIONS (3)
  - Hepatitis [Unknown]
  - Pain [Unknown]
  - Malaise [Unknown]

NARRATIVE: CASE EVENT DATE: 20200801
